FAERS Safety Report 23321931 (Version 4)
Quarter: 2024Q1

REPORT INFORMATION
  Report Type: Spontaneous
  Country: US (occurrence: US)
  Receive Date: 20231220
  Receipt Date: 20240301
  Transmission Date: 20240409
  Serious: Yes (Life-Threatening, Hospitalization, Disabling, Other)
  Sender: FDA-Public Use
  Company Number: US-PFIZER INC-PV202300202795

PATIENT
  Age: 3 Year
  Sex: Male
  Weight: 14 kg

DRUGS (20)
  1. METHYLPREDNISOLONE SODIUM SUCCINATE [Suspect]
     Active Substance: METHYLPREDNISOLONE SODIUM SUCCINATE
     Indication: Autoinflammatory disease
     Dosage: UNK
     Dates: start: 20231020
  2. METHYLPREDNISOLONE SODIUM SUCCINATE [Suspect]
     Active Substance: METHYLPREDNISOLONE SODIUM SUCCINATE
     Indication: Condition aggravated
     Dosage: 10 MG/KG
     Route: 042
     Dates: start: 2023
  3. METHYLPREDNISOLONE SODIUM SUCCINATE [Suspect]
     Active Substance: METHYLPREDNISOLONE SODIUM SUCCINATE
     Dosage: 14 MG/KG
     Route: 042
     Dates: start: 202311
  4. METHYLPREDNISOLONE SODIUM SUCCINATE [Suspect]
     Active Substance: METHYLPREDNISOLONE SODIUM SUCCINATE
     Dosage: 4 MG/KG
     Route: 042
     Dates: start: 202311
  5. TOFACITINIB [Suspect]
     Active Substance: TOFACITINIB
     Indication: Autoinflammatory disease
     Dosage: UNK
     Dates: start: 20230623, end: 20231025
  6. XELJANZ [Suspect]
     Active Substance: TOFACITINIB CITRATE
     Indication: Juvenile idiopathic arthritis
     Dosage: 6 MG, 2X/DAY
     Route: 048
     Dates: start: 20230602, end: 20231025
  7. RUXOLITINIB [Concomitant]
     Active Substance: RUXOLITINIB
     Indication: Autoinflammatory disease
     Dosage: UNK
  8. ANAKINRA [Concomitant]
     Active Substance: ANAKINRA
     Indication: Autoinflammatory disease
     Dosage: 80 MG
     Dates: start: 20230216
  9. ANAKINRA [Concomitant]
     Active Substance: ANAKINRA
     Indication: Juvenile idiopathic arthritis
     Dosage: 100 MG
  10. ANAKINRA [Concomitant]
     Active Substance: ANAKINRA
     Dosage: 100 MG, 4X/DAY
     Dates: start: 202310, end: 20231021
  11. ANAKINRA [Concomitant]
     Active Substance: ANAKINRA
     Dosage: UNK
     Route: 058
     Dates: start: 20230216, end: 20231021
  12. IMMUNE GLOBULIN NOS [Concomitant]
     Active Substance: IMMUNE GLOBULIN NOS
     Dosage: UNK
     Dates: start: 20231021
  13. AZITHROMYCIN [Concomitant]
     Active Substance: AZITHROMYCIN
     Dosage: UNK
  14. EPINEPHRINE [Concomitant]
     Active Substance: EPINEPHRINE
     Dosage: UNK
     Dates: start: 20231123, end: 20231125
  15. HYDROCORTISONE ACETATE [Concomitant]
     Active Substance: HYDROCORTISONE ACETATE
     Dosage: UNK
     Dates: start: 20231124
  16. PENTAMIDINE [Concomitant]
     Active Substance: PENTAMIDINE
     Dosage: UNK
  17. CANAKINUMAB [Concomitant]
     Active Substance: CANAKINUMAB
     Dosage: UNK
     Dates: start: 20230517
  18. BARICITINIB [Concomitant]
     Active Substance: BARICITINIB
     Dosage: UNK
     Dates: start: 20231025
  19. CYCLOSPORINE [Concomitant]
     Active Substance: CYCLOSPORINE
     Dosage: UNK
     Dates: start: 20231029
  20. EMAPALUMAB [Concomitant]
     Active Substance: EMAPALUMAB
     Dosage: UNK
     Dates: start: 20231116

REACTIONS (6)
  - Juvenile idiopathic arthritis [Not Recovered/Not Resolved]
  - Pneumocystis jirovecii pneumonia [Not Recovered/Not Resolved]
  - Lung disorder [Not Recovered/Not Resolved]
  - Haemophagocytic lymphohistiocytosis [Unknown]
  - Drug ineffective for unapproved indication [Unknown]
  - Off label use [Unknown]

NARRATIVE: CASE EVENT DATE: 20230101
